FAERS Safety Report 5702026-4 (Version None)
Quarter: 2008Q2

REPORT INFORMATION
  Report Type: 
  Country: None (occurrence: None)
  Receive Date: 20080411
  Receipt Date: 20071015
  Transmission Date: 20081010
  Serious: Yes (Hospitalization)
  Sender: FDA-Public Use
  Company Number: US-ABBOTT-07P-163-0420794-00

PATIENT
  Sex: Male
  Weight: 48.578 kg

DRUGS (7)
  1. DEPAKOTE TABLETS 250MG [Suspect]
     Indication: ABNORMAL BEHAVIOUR
     Route: 048
     Dates: start: 20070801
  2. DEPAKOTE TABLETS 250MG [Suspect]
     Indication: AFFECTIVE DISORDER
  3. DEPAKOTE TABLETS 250MG [Suspect]
     Indication: ATTENTION DEFICIT/HYPERACTIVITY DISORDER
  4. OBETROL [Concomitant]
     Indication: ATTENTION DEFICIT/HYPERACTIVITY DISORDER
     Route: 048
     Dates: start: 20040101
  5. FEXOFENADINE [Concomitant]
     Indication: AUTOIMMUNE DISORDER
     Route: 048
     Dates: start: 20000101
  6. SINGULAIR [Concomitant]
     Indication: AUTOIMMUNE DISORDER
     Route: 048
     Dates: start: 20000101
  7. CLONIDINE [Concomitant]
     Indication: ABNORMAL BEHAVIOUR
     Route: 048
     Dates: start: 20040101

REACTIONS (2)
  - AFFECTIVE DISORDER [None]
  - DRUG LEVEL DECREASED [None]
